FAERS Safety Report 22139244 (Version 1)
Quarter: 2023Q1

REPORT INFORMATION
  Report Type: Spontaneous
  Country: US (occurrence: US)
  Receive Date: 20230327
  Receipt Date: 20230327
  Transmission Date: 20230417
  Serious: Yes (Other)
  Sender: FDA-Public Use
  Company Number: US-drreddys-SPO/USA/23/0162680

PATIENT
  Age: 70 Year
  Sex: Male

DRUGS (1)
  1. TACROLIMUS [Suspect]
     Active Substance: TACROLIMUS
     Indication: Immunosuppressant drug therapy

REACTIONS (5)
  - Mitral valve incompetence [Unknown]
  - Hypertrophic cardiomyopathy [Unknown]
  - Left ventricle outflow tract obstruction [Unknown]
  - Gene mutation identification test positive [Unknown]
  - Atrial flutter [Unknown]
